FAERS Safety Report 5780559-2 (Version None)
Quarter: 2008Q2

REPORT INFORMATION
  Report Type: 
  Country: None (occurrence: None)
  Receive Date: 20080620
  Receipt Date: 20080610
  Transmission Date: 20081010
  Serious: Yes (Hospitalization)
  Sender: FDA-Public Use
  Company Number: US-BAYER-200812387BCC

PATIENT
  Age: 66 Year
  Sex: Female
  Weight: 112 kg

DRUGS (3)
  1. ASPIRIN [Suspect]
     Indication: PAIN IN EXTREMITY
     Dosage: UNIT DOSE: 325 MG
     Route: 048
     Dates: start: 20080122, end: 20080123
  2. VITAMIN E [Concomitant]
  3. HIGH BLOOD PRESSURE MEDICATION [Concomitant]

REACTIONS (7)
  - FAECAL INCONTINENCE [None]
  - FEELING ABNORMAL [None]
  - HALLUCINATION [None]
  - THERAPEUTIC AGENT TOXICITY [None]
  - URINARY INCONTINENCE [None]
  - URINARY TRACT INFECTION [None]
  - URINARY TRACT INFECTION FUNGAL [None]
